FAERS Safety Report 12460081 (Version 1)
Quarter: 2016Q2

REPORT INFORMATION
  Report Type: Spontaneous
  Country: US (occurrence: US)
  Receive Date: 20160613
  Receipt Date: 20160613
  Transmission Date: 20160815
  Serious: No
  Sender: FDA-Public Use
  Company Number: US-PFIZER INC-2016270754

PATIENT
  Age: 65 Year
  Sex: Male

DRUGS (1)
  1. AROMASIN [Suspect]
     Active Substance: EXEMESTANE
     Indication: BLOOD OESTROGEN INCREASED

REACTIONS (3)
  - Asthenia [Unknown]
  - Vomiting [Unknown]
  - Product use issue [Unknown]
